FAERS Safety Report 21030022 (Version 1)
Quarter: 2022Q3

REPORT INFORMATION
  Report Type: Spontaneous
  Country: US (occurrence: None)
  Receive Date: 20220701
  Receipt Date: 20220701
  Transmission Date: 20221027
  Serious: No
  Sender: FDA-Public Use
  Company Number: US-ROCHE-2958650

PATIENT
  Sex: Male

DRUGS (17)
  1. ACTEMRA [Suspect]
     Active Substance: TOCILIZUMAB
     Indication: Osteoarthritis
     Dosage: 162MG 0.9ML
     Route: 058
  2. ACTEMRA [Suspect]
     Active Substance: TOCILIZUMAB
  3. CALCIUM ACETYLSALICYLATE [Concomitant]
  4. DIETARY SUPPLEMENT\HERBALS\MILK THISTLE [Concomitant]
     Active Substance: DIETARY SUPPLEMENT\HERBALS\MILK THISTLE
  5. FISH OIL [Concomitant]
     Active Substance: FISH OIL
  6. FOLIC ACID [Concomitant]
     Active Substance: FOLIC ACID
  7. ALBUTEROL SULFATE [Concomitant]
     Active Substance: ALBUTEROL SULFATE
  8. AZITHROMYCIN [Concomitant]
     Active Substance: AZITHROMYCIN
  9. BENZONATATE [Concomitant]
     Active Substance: BENZONATATE
  10. METHYLPREDNISOLONE [Concomitant]
     Active Substance: METHYLPREDNISOLONE
  11. ALLOPURINOL [Concomitant]
     Active Substance: ALLOPURINOL
  12. COLCRYS [Concomitant]
     Active Substance: COLCHICINE
  13. MELOXICAM [Concomitant]
     Active Substance: MELOXICAM
  14. LEVOFLOXACIN [Concomitant]
     Active Substance: LEVOFLOXACIN
  15. LOSARTAN POTASSIUM [Concomitant]
     Active Substance: LOSARTAN POTASSIUM
  16. METHOTREXATE [Concomitant]
     Active Substance: METHOTREXATE
  17. PREDNISONE [Concomitant]
     Active Substance: PREDNISONE

REACTIONS (3)
  - Pain in extremity [Unknown]
  - Intentional product use issue [Unknown]
  - Off label use [Unknown]
